FAERS Safety Report 10853603 (Version 1)
Quarter: 2015Q1

REPORT INFORMATION
  Report Type: Spontaneous
  Country: US (occurrence: None)
  Receive Date: 20150218
  Receipt Date: 20150218
  Transmission Date: 20150721
  Serious: No
  Sender: FDA-Public Use
  Company Number: None

PATIENT
  Age: 52 Year
  Sex: Female

DRUGS (11)
  1. ASPIRIN. [Concomitant]
     Active Substance: ASPIRIN
  2. IRON [Concomitant]
     Active Substance: IRON
  3. ENDOCET [Concomitant]
     Active Substance: ACETAMINOPHEN\OXYCODONE HYDROCHLORIDE
  4. MAGNESIUM [Concomitant]
     Active Substance: MAGNESIUM
  5. LYRICA [Concomitant]
     Active Substance: PREGABALIN
  6. VITAMIN D [Concomitant]
     Active Substance: CHOLECALCIFEROL
  7. BUDESONIDE. [Concomitant]
     Active Substance: BUDESONIDE
  8. COPAXONE [Suspect]
     Active Substance: GLATIRAMER ACETATE
     Indication: MULTIPLE SCLEROSIS
     Route: 058
     Dates: start: 20140916
  9. LISINOPRIL. [Concomitant]
     Active Substance: LISINOPRIL
  10. BACLOFEN. [Concomitant]
     Active Substance: BACLOFEN
  11. METOPROLOL TARTRATE. [Concomitant]
     Active Substance: METOPROLOL TARTRATE

REACTIONS (7)
  - Fatigue [None]
  - Injection site induration [None]
  - Retching [None]
  - Fall [None]
  - Muscular weakness [None]
  - Paraesthesia [None]
  - Contusion [None]

NARRATIVE: CASE EVENT DATE: 201501
